FAERS Safety Report 14141931 (Version 1)
Quarter: 2017Q4

REPORT INFORMATION
  Report Type: Spontaneous
  Country: US (occurrence: US)
  Receive Date: 20171030
  Receipt Date: 20171030
  Transmission Date: 20180321
  Serious: No
  Sender: FDA-Public Use
  Company Number: US-APOTEX-2017AP013261

PATIENT
  Age: 48 Year
  Sex: Male

DRUGS (2)
  1. FLUTICASONE PROPIONATE NASAL SPRAY USP [Suspect]
     Active Substance: FLUTICASONE PROPIONATE
     Indication: SEASONAL ALLERGY
  2. FLUTICASONE PROPIONATE NASAL SPRAY USP [Suspect]
     Active Substance: FLUTICASONE PROPIONATE
     Indication: RHINITIS
     Dosage: UNK
     Route: 065
     Dates: end: 20170613

REACTIONS (3)
  - Product substitution issue [Not Recovered/Not Resolved]
  - Dry mouth [Not Recovered/Not Resolved]
  - Dysgeusia [Not Recovered/Not Resolved]
